FAERS Safety Report 8842578 (Version 1)
Quarter: 2012Q4

REPORT INFORMATION
  Report Type: 
  Country: US (occurrence: US)
  Receive Date: 20121016
  Receipt Date: 20121016
  Transmission Date: 20130627
  Serious: No
  Sender: FDA-Public Use
  Company Number: US-B.I. PHARMACEUTICALS,INC./RIDGEFIELD-2011-BP-07788BP

PATIENT
  Age: 66 None
  Sex: Male

DRUGS (10)
  1. PRADAXA [Suspect]
     Indication: ATRIAL FIBRILLATION
     Dosage: 300 mg
     Route: 048
     Dates: start: 20110202
  2. ALLOPURINOL [Concomitant]
     Indication: GOUT
     Dosage: 300 mg
     Route: 048
     Dates: start: 1992
  3. ANDROGEL [Concomitant]
     Indication: BLOOD TESTOSTERONE DECREASED
     Route: 061
     Dates: start: 2009
  4. CARDIZEM LA [Concomitant]
     Indication: HYPERTENSION
     Dosage: 300 mg
     Route: 048
     Dates: start: 2009
  5. HYDROCHLOROTHIAZIDE [Concomitant]
     Indication: HYPERTENSION
     Dosage: 12.5 mg
     Route: 048
     Dates: start: 2009
  6. JANUVIA [Concomitant]
     Indication: TYPE 2 DIABETES MELLITUS
     Dosage: 100 mg
     Route: 048
     Dates: start: 200706
  7. LOVAZA [Concomitant]
     Indication: BLOOD CHOLESTEROL INCREASED
     Dosage: 4000 mg
     Route: 048
     Dates: start: 2007
  8. OMEPRAZOLE [Concomitant]
     Indication: GASTRIC PH DECREASED
     Dosage: 20 mg
     Route: 048
     Dates: start: 2007
  9. VITAMIN D 3 [Concomitant]
     Dosage: 1000 U
     Route: 048
     Dates: start: 2009
  10. COQ10 [Concomitant]
     Indication: SUPPLEMENTATION THERAPY
     Dosage: 150 mg
     Route: 048
     Dates: start: 2005

REACTIONS (7)
  - Haemorrhoidal haemorrhage [Recovered/Resolved]
  - Abdominal pain [Recovered/Resolved]
  - Gallbladder disorder [Not Recovered/Not Resolved]
  - Abdominal distension [Recovered/Resolved]
  - Dyspepsia [Not Recovered/Not Resolved]
  - Hypertension [Not Recovered/Not Resolved]
  - Hypovitaminosis [Recovered/Resolved]
